FAERS Safety Report 24132279 (Version 1)
Quarter: 2024Q3

REPORT INFORMATION
  Report Type: Spontaneous
  Country: AU (occurrence: None)
  Receive Date: 20240723
  Receipt Date: 20240723
  Transmission Date: 20241017
  Serious: Yes (Hospitalization)
  Sender: Public
  Company Number: None

PATIENT
  Age: 56 Year
  Sex: Female
  Weight: 100 kg

DRUGS (7)
  1. OZEMPIC [Suspect]
     Active Substance: SEMAGLUTIDE
     Indication: Obesity
     Dosage: OTHER QUANTITY : 1 INJECTION(S);?
     Route: 030
     Dates: start: 2024, end: 2024
  2. ENTERCERPT [Concomitant]
  3. HYDROXYCHLOROQUINE [Concomitant]
     Active Substance: HYDROXYCHLOROQUINE
  4. PREDNISOLONE [Concomitant]
     Active Substance: PREDNISOLONE
  5. MOBIC [Concomitant]
     Active Substance: MELOXICAM
  6. TRAMADOL [Concomitant]
     Active Substance: TRAMADOL\TRAMADOL HYDROCHLORIDE
  7. OZEMPIC [Concomitant]
     Active Substance: SEMAGLUTIDE

REACTIONS (8)
  - Tremor [None]
  - Hyperhidrosis [None]
  - Nausea [None]
  - Dizziness [None]
  - Vomiting [None]
  - Constipation [None]
  - Fatigue [None]
  - Diarrhoea [None]

NARRATIVE: CASE EVENT DATE: 20240407
